FAERS Safety Report 8592028-5 (Version None)
Quarter: 2012Q3

REPORT INFORMATION
  Report Type: 
  Country: None (occurrence: None)
  Receive Date: 20120814
  Receipt Date: 20120801
  Transmission Date: 20120928
  Serious: Yes (Hospitalization, Other)
  Sender: FDA-Public Use
  Company Number: PHHY2012JP067778

PATIENT
  Sex: Female
  Weight: 53 kg

DRUGS (12)
  1. SITAGLIPTIN PHOSPHATE [Suspect]
     Dosage: 50 MG, DAILY
     Dates: start: 20100319
  2. ZOLPIDEM [Concomitant]
     Dosage: 5 MG, UNK
     Route: 048
  3. LASIX [Concomitant]
     Indication: HYPERTENSION
     Dosage: 40 MG, UNK
     Route: 048
     Dates: start: 20100419
  4. RASILEZ [Suspect]
     Indication: HYPERTENSION
     Dosage: 150 MG, QD
     Route: 048
     Dates: start: 20100521, end: 20101012
  5. SIMVASTATIN [Suspect]
     Dosage: 5 MG, DAILY
     Route: 048
     Dates: start: 20100304
  6. MECOBALAMIN [Concomitant]
     Dosage: 1.5 MG, UNK
     Route: 048
     Dates: start: 20100304, end: 20110318
  7. ZOLPIDEM [Concomitant]
     Dosage: 5 MG, UNK
     Route: 048
     Dates: start: 20100304
  8. ADALAT CC [Concomitant]
     Indication: HYPERTENSION
     Dosage: 20 MG, UNK
     Route: 048
     Dates: start: 20101204
  9. ADALAT CC [Concomitant]
     Dosage: 10 MG, UNK
     Route: 048
  10. GLYBURIDE [Suspect]
     Dosage: 2.5 MG, DAILY
     Dates: start: 20100304
  11. RASILEZ [Suspect]
     Dosage: 150 MG, QD
     Route: 048
     Dates: start: 20101204
  12. APONOL [Suspect]
     Dosage: 30 MG, DAILY
     Route: 048
     Dates: start: 20100304

REACTIONS (7)
  - ENTEROCOLITIS [None]
  - BLOOD CREATININE INCREASED [None]
  - BLOOD PRESSURE SYSTOLIC INCREASED [None]
  - INSOMNIA [None]
  - CONSTIPATION [None]
  - GLYCOSYLATED HAEMOGLOBIN INCREASED [None]
  - GASTRIC ULCER [None]
